FAERS Safety Report 18936260 (Version 1)
Quarter: 2021Q1

REPORT INFORMATION
  Report Type: Spontaneous
  Country: US (occurrence: US)
  Receive Date: 20210224
  Receipt Date: 20210224
  Transmission Date: 20210420
  Serious: No
  Sender: FDA-Public Use
  Company Number: US-ASTRAZENECA-2021A059685

PATIENT
  Sex: Female

DRUGS (1)
  1. SYMBICORT [Suspect]
     Active Substance: BUDESONIDE\FORMOTEROL FUMARATE DIHYDRATE
     Indication: DYSPNOEA
     Dosage: 160/4.5 MCG, AS REQUIRED AS REQUIRED
     Route: 055
     Dates: start: 202010

REACTIONS (4)
  - Intentional device misuse [Not Recovered/Not Resolved]
  - Cough [Not Recovered/Not Resolved]
  - Off label use [Not Recovered/Not Resolved]
  - Device issue [Unknown]
